FAERS Safety Report 17043209 (Version 1)
Quarter: 2019Q4

REPORT INFORMATION
  Report Type: Spontaneous
  Country: US (occurrence: US)
  Receive Date: 20191118
  Receipt Date: 20191118
  Transmission Date: 20200122
  Serious: No
  Sender: FDA-Public Use
  Company Number: US-VERTEX PHARMACEUTICALS-2019-011139

PATIENT
  Age: 6 Year
  Sex: Male

DRUGS (19)
  1. ORKAMBI [Suspect]
     Active Substance: IVACAFTOR\LUMACAFTOR
     Indication: CYSTIC FIBROSIS
     Dosage: 2 DOSAGE FORM (100/125 MG), BID
     Route: 048
     Dates: start: 20180228
  2. ADVIL [IBUPROFEN] [Concomitant]
     Active Substance: IBUPROFEN
  3. CREON [Concomitant]
     Active Substance: PANCRELIPASE AMYLASE\PANCRELIPASE LIPASE\PANCRELIPASE PROTEASE
  4. CYPROHEPTADINE. [Concomitant]
     Active Substance: CYPROHEPTADINE
  5. LANSOPRAZOLE. [Concomitant]
     Active Substance: LANSOPRAZOLE
  6. RANITIDINE. [Concomitant]
     Active Substance: RANITIDINE
  7. FLORASTOR [LACTOBACILLUS ACIDOPHILUS] [Concomitant]
  8. PULMOZYME [Concomitant]
     Active Substance: DORNASE ALFA
  9. LEVALBUTEROL [LEVOSALBUTAMOL] [Concomitant]
     Active Substance: LEVALBUTEROL
     Dosage: HFA AND NEB SOL
  10. SULFATRIM [SULFADIAZINE;TRIMETHOPRIM] [Concomitant]
     Active Substance: SULFADIAZINE\TRIMETHOPRIM
     Dosage: PD SUSP
  11. LINEZOLID. [Concomitant]
     Active Substance: LINEZOLID
  12. PHYTONADIONE. [Concomitant]
     Active Substance: PHYTONADIONE
  13. ADVAIR HFA [Concomitant]
     Active Substance: FLUTICASONE PROPIONATE\SALMETEROL XINAFOATE
  14. AZITHROMYCIN ANHYDROUS. [Concomitant]
     Active Substance: AZITHROMYCIN ANHYDROUS
  15. CLINDAMYCIN. [Concomitant]
     Active Substance: CLINDAMYCIN
  16. FERROUS SULFATE. [Concomitant]
     Active Substance: FERROUS SULFATE
  17. MONTELUKAST [Concomitant]
     Active Substance: MONTELUKAST SODIUM
  18. NYSTATIN. [Concomitant]
     Active Substance: NYSTATIN
     Dosage: SUSP
  19. TOBRAMYCIN. [Concomitant]
     Active Substance: TOBRAMYCIN

REACTIONS (1)
  - Sinusitis [Unknown]

NARRATIVE: CASE EVENT DATE: 20191106
